FAERS Safety Report 5805251-7 (Version None)
Quarter: 2008Q3

REPORT INFORMATION
  Report Type: 
  Country: None (occurrence: None)
  Receive Date: 20080703
  Receipt Date: 20080619
  Transmission Date: 20090109
  Serious: Yes (Hospitalization, Other)
  Sender: FDA-Public Use
  Company Number: 2008PV035825

PATIENT
  Age: 48 Year
  Sex: Male

DRUGS (6)
  1. SYMLIN [Suspect]
     Indication: TYPE 2 DIABETES MELLITUS
     Dosage: ; BID; SC
     Route: 058
     Dates: start: 20060301, end: 20080618
  2. SYMLIN [Suspect]
     Indication: TYPE 2 DIABETES MELLITUS
     Dosage: ; BID; SC
     Route: 058
     Dates: start: 20080618
  3. INSULIN U-500 [Suspect]
  4. METFORMIN HCL [Suspect]
  5. INSULIN INSULATARD NPH NORDISK [Suspect]
  6. HUMALOG [Suspect]

REACTIONS (2)
  - DRUG PRESCRIBING ERROR [None]
  - HYPOGLYCAEMIA [None]
